FAERS Safety Report 26126557 (Version 1)
Quarter: 2025Q4

REPORT INFORMATION
  Report Type: Spontaneous
  Country: GB (occurrence: GB)
  Receive Date: 20251205
  Receipt Date: 20251205
  Transmission Date: 20260118
  Serious: Yes (Other)
  Sender: MYLAN
  Company Number: GB-MYLANLABS-2025M1101107

PATIENT
  Sex: Male
  Weight: 62.1 kg

DRUGS (5)
  1. CLOZARIL [Suspect]
     Active Substance: CLOZAPINE
     Indication: Schizophrenia
     Dosage: 100 MILLIGRAM, BID
     Dates: start: 20251103, end: 20251120
  2. CARIPRAZINE [Concomitant]
     Active Substance: CARIPRAZINE
     Indication: Schizophrenia
     Dosage: 4.5 MILLIGRAM, QD
     Dates: start: 20250823
  3. PROCYCLIDINE [Concomitant]
     Active Substance: PROCYCLIDINE
     Indication: Extrapyramidal disorder
     Dosage: 5 MILLIGRAM, BID
     Dates: start: 20250520
  4. MONTELUKAST [Concomitant]
     Active Substance: MONTELUKAST
     Indication: Asthma
     Dosage: 10 MILLIGRAM, QD
     Dates: start: 20250516
  5. BUDESONIDE [Concomitant]
     Active Substance: BUDESONIDE
     Indication: Asthma
     Dosage: UNK, BID (2 ACTUATIONS BD)
     Dates: start: 20250519

REACTIONS (5)
  - Myocarditis [Recovered/Resolved]
  - Troponin increased [Recovering/Resolving]
  - Heart rate increased [Recovered/Resolved]
  - N-terminal prohormone brain natriuretic peptide increased [Unknown]
  - C-reactive protein increased [Recovering/Resolving]

NARRATIVE: CASE EVENT DATE: 20251117
